FAERS Safety Report 6706035-8 (Version None)
Quarter: 2010Q2

REPORT INFORMATION
  Report Type: 
  Country: None (occurrence: None)
  Receive Date: 20100503
  Receipt Date: 20100428
  Transmission Date: 20101027
  Serious: Yes (Other)
  Sender: FDA-Public Use
  Company Number: US-BRISTOL-MYERS SQUIBB COMPANY-15072937

PATIENT
  Age: 78 Year
  Sex: Female

DRUGS (1)
  1. COUMADIN [Suspect]
     Dates: end: 20091101

REACTIONS (4)
  - ARRHYTHMIA [None]
  - CONTUSION [None]
  - FALL [None]
  - HAEMATOMA [None]
